FAERS Safety Report 7555567-1 (Version None)
Quarter: 2011Q2

REPORT INFORMATION
  Report Type: 
  Country: None (occurrence: None)
  Receive Date: 20110617
  Receipt Date: 20051114
  Transmission Date: 20111010
  Serious: Yes (Other)
  Sender: FDA-Public Use
  Company Number: PHMT2005CA00581

PATIENT
  Sex: Female

DRUGS (2)
  1. SANDOSTATIN LAR [Suspect]
     Indication: CARCINOID TUMOUR
     Dosage: 20 MG/EVERY 4 WKS
     Dates: start: 20050913
  2. FOSAMAX [Concomitant]

REACTIONS (1)
  - WEIGHT DECREASED [None]
